FAERS Safety Report 16365088 (Version 1)
Quarter: 2019Q2

REPORT INFORMATION
  Report Type: Report from Study
  Country: CO (occurrence: CO)
  Receive Date: 20190529
  Receipt Date: 20190529
  Transmission Date: 20190711
  Serious: Yes (Hospitalization, Other)
  Sender: FDA-Public Use
  Company Number: CO-AMGEN-COLSL2019081982

PATIENT
  Age: 82 Year
  Sex: Female

DRUGS (1)
  1. PROLIA [Suspect]
     Active Substance: DENOSUMAB
     Indication: OSTEOPOROSIS POSTMENOPAUSAL
     Dosage: 60 MILLIGRAM, Q6MO
     Route: 058
     Dates: start: 20170126

REACTIONS (5)
  - Osteoarthritis [Unknown]
  - Lung disorder [Unknown]
  - Malaise [Not Recovered/Not Resolved]
  - Viral diarrhoea [Unknown]
  - Renal disorder [Unknown]
